FAERS Safety Report 6637479-0 (Version None)
Quarter: 2010Q1

REPORT INFORMATION
  Report Type: 
  Country: None (occurrence: None)
  Receive Date: 20100316
  Receipt Date: 20100309
  Transmission Date: 20100710
  Serious: Yes (Other)
  Sender: FDA-Public Use
  Company Number: BR-BRISTOL-MYERS SQUIBB COMPANY-15016389

PATIENT
  Age: 53 Year
  Sex: Male
  Weight: 93 kg

DRUGS (1)
  1. HYDREA [Suspect]
     Indication: CHRONIC MYELOID LEUKAEMIA
     Dosage: DOSE DECREASED TO DOSAGE OF 50MG AND 100MG INTERCALATING EACH DOSE PER DAY .INTERRUPTED ON 7MAR10

REACTIONS (1)
  - SPLENOMEGALY [None]
